FAERS Safety Report 16403308 (Version 1)
Quarter: 2019Q2

REPORT INFORMATION
  Report Type: Report from Study
  Country: CA (occurrence: CA)
  Receive Date: 20190607
  Receipt Date: 20190607
  Transmission Date: 20190711
  Serious: Yes (Other)
  Sender: FDA-Public Use
  Company Number: CA-ORION CORPORATION ORION PHARMA-TREX2019-1713

PATIENT
  Age: 52 Year
  Sex: Male

DRUGS (37)
  1. PREGABALIN. [Suspect]
     Active Substance: PREGABALIN
     Indication: PRODUCT USED FOR UNKNOWN INDICATION
     Route: 065
  2. ATROVENT [Concomitant]
     Active Substance: IPRATROPIUM BROMIDE
     Route: 065
  3. IRBESARTAN. [Concomitant]
     Active Substance: IRBESARTAN
     Route: 065
  4. JAMP CELECOXIB [Concomitant]
     Route: 065
  5. TYLENOL [Concomitant]
     Active Substance: ACETAMINOPHEN
     Route: 065
  6. COSENTYX [Suspect]
     Active Substance: SECUKINUMAB
     Route: 058
  7. COSENTYX [Suspect]
     Active Substance: SECUKINUMAB
     Route: 058
  8. BETAMETHASONE VALERATE. [Concomitant]
     Active Substance: BETAMETHASONE VALERATE
     Route: 065
  9. DULOXETINE HYDROCHLORIDE. [Concomitant]
     Active Substance: DULOXETINE HYDROCHLORIDE
     Route: 065
  10. ENBREL [Concomitant]
     Active Substance: ETANERCEPT
     Route: 065
  11. JAMP-CALCIUM + VITAMIN D [Concomitant]
     Route: 065
  12. XYLOCAINE JELLY WITH HIBITANE [Concomitant]
     Route: 065
  13. MOUTH WASH [Concomitant]
     Route: 065
  14. AMITRIPTYLINE HYDROCHLORIDE. [Concomitant]
     Active Substance: AMITRIPTYLINE HYDROCHLORIDE
     Route: 065
  15. COLCHICINE. [Concomitant]
     Active Substance: COLCHICINE
     Route: 065
  16. METRONIDAZOLE. [Concomitant]
     Active Substance: METRONIDAZOLE
     Route: 065
  17. NAPROXEN. [Concomitant]
     Active Substance: NAPROXEN
     Route: 065
  18. NIFEDIPINE. [Concomitant]
     Active Substance: NIFEDIPINE
     Route: 065
  19. COSENTYX [Suspect]
     Active Substance: SECUKINUMAB
     Route: 058
  20. AMOXICILLIN. [Concomitant]
     Active Substance: AMOXICILLIN
     Route: 065
  21. HUMIRA [Concomitant]
     Active Substance: ADALIMUMAB
     Route: 065
  22. STELARA [Concomitant]
     Active Substance: USTEKINUMAB
     Route: 065
  23. METHOTREXATE (TRADE NAME UNKNOWN) [Suspect]
     Active Substance: METHOTREXATE
     Indication: PRODUCT USED FOR UNKNOWN INDICATION
     Route: 065
  24. COSENTYX [Suspect]
     Active Substance: SECUKINUMAB
     Indication: PSORIATIC ARTHROPATHY
     Route: 058
  25. APO-CEPHALEX [Concomitant]
     Active Substance: CEPHALEXIN
     Route: 065
  26. XYLOCAINE [Concomitant]
     Active Substance: LIDOCAINE HYDROCHLORIDE
     Route: 065
  27. APO-ATORVASTATIN [Concomitant]
     Active Substance: ATORVASTATIN
     Route: 065
  28. APO-DOXY [Concomitant]
     Active Substance: DOXYCYCLINE HYCLATE
     Route: 065
  29. APO-ZOPICLONE [Concomitant]
     Active Substance: ZOPICLONE
     Route: 065
  30. PANTOPRAZOLE TEVA [Concomitant]
     Active Substance: PANTOPRAZOLE SODIUM
     Route: 065
  31. PREDNISONE. [Concomitant]
     Active Substance: PREDNISONE
     Route: 065
  32. SALBUTAMOL TEVA [Concomitant]
     Active Substance: ALBUTEROL
     Route: 065
  33. SULFASALAZINE. [Concomitant]
     Active Substance: SULFASALAZINE
     Route: 065
  34. VITAMIN D [Concomitant]
     Active Substance: VITAMIN D NOS
     Route: 065
  35. ALENDRONIC ACID [Suspect]
     Active Substance: ALENDRONIC ACID
     Indication: PRODUCT USED FOR UNKNOWN INDICATION
     Route: 065
  36. COSENTYX [Suspect]
     Active Substance: SECUKINUMAB
     Route: 058
  37. PREGABALINA TEVA [Concomitant]
     Route: 065

REACTIONS (17)
  - Hypoacusis [Not Recovered/Not Resolved]
  - Movement disorder [Not Recovered/Not Resolved]
  - Musculoskeletal discomfort [Not Recovered/Not Resolved]
  - Pain [Not Recovered/Not Resolved]
  - Paraesthesia [Not Recovered/Not Resolved]
  - Gait disturbance [Not Recovered/Not Resolved]
  - Fatigue [Not Recovered/Not Resolved]
  - Gait inability [Not Recovered/Not Resolved]
  - Pain in extremity [Not Recovered/Not Resolved]
  - Psoriatic arthropathy [Not Recovered/Not Resolved]
  - Musculoskeletal pain [Not Recovered/Not Resolved]
  - Arthralgia [Not Recovered/Not Resolved]
  - Arthropathy [Not Recovered/Not Resolved]
  - Asthenia [Not Recovered/Not Resolved]
  - Intervertebral disc protrusion [Not Recovered/Not Resolved]
  - Cervical vertebral fracture [Not Recovered/Not Resolved]
  - Musculoskeletal stiffness [Not Recovered/Not Resolved]
